FAERS Safety Report 18026883 (Version 4)
Quarter: 2021Q2

REPORT INFORMATION
  Report Type: Spontaneous
  Country: US (occurrence: US)
  Receive Date: 20200715
  Receipt Date: 20210624
  Transmission Date: 20210717
  Serious: Yes (Other)
  Sender: FDA-Public Use
  Company Number: US-GILEAD-2020-0479893

PATIENT
  Sex: Female

DRUGS (30)
  1. OMEPRAZOLE. [Concomitant]
     Active Substance: OMEPRAZOLE
  2. PREDNISONE. [Concomitant]
     Active Substance: PREDNISONE
  3. ISENTRESS [Concomitant]
     Active Substance: RALTEGRAVIR POTASSIUM
     Dosage: UNK
     Route: 065
     Dates: start: 2015, end: 2016
  4. VIREAD [Suspect]
     Active Substance: TENOFOVIR DISOPROXIL FUMARATE
     Indication: HIV INFECTION
     Dosage: UNK
     Route: 048
     Dates: start: 2011, end: 2015
  5. TACROLIMUS. [Concomitant]
     Active Substance: TACROLIMUS
  6. NORVIR [Concomitant]
     Active Substance: RITONAVIR
  7. TRUVADA [Suspect]
     Active Substance: EMTRICITABINE\TENOFOVIR DISOPROXIL FUMARATE
     Indication: HIV INFECTION
     Dosage: UNK
     Route: 048
     Dates: start: 2011, end: 2015
  8. BACTRIM [Concomitant]
     Active Substance: SULFAMETHOXAZOLE\TRIMETHOPRIM
  9. TAGAMET [Concomitant]
     Active Substance: CIMETIDINE
  10. CORTISONE [Concomitant]
     Active Substance: CORTISONE
  11. HEPARIN [Concomitant]
     Active Substance: HEPARIN SODIUM
  12. PENICILLIN NOS [Concomitant]
     Active Substance: PENICILLIN
  13. EMTRIVA [Concomitant]
     Active Substance: EMTRICITABINE
  14. SUSTIVA [Concomitant]
     Active Substance: EFAVIRENZ
  15. ACETAMINOPHEN. [Concomitant]
     Active Substance: ACETAMINOPHEN
  16. PREZISTA [Concomitant]
     Active Substance: DARUNAVIR ETHANOLATE
  17. TRUVADA [Suspect]
     Active Substance: EMTRICITABINE\TENOFOVIR DISOPROXIL FUMARATE
     Dosage: UNK
     Route: 048
     Dates: start: 2011, end: 2011
  18. ATRIPLA [Suspect]
     Active Substance: EFAVIRENZ\EMTRICITABINE\TENOFOVIR DISOPROXIL FUMARATE
     Indication: HIV INFECTION
     Dosage: UNK
     Route: 048
     Dates: start: 2011, end: 2015
  19. GENVOYA [Concomitant]
     Active Substance: COBICISTAT\ELVITEGRAVIR\EMTRICITABINE\TENOFOVIR ALAFENAMIDE FUMARATE
  20. AMOXICILLIN. [Concomitant]
     Active Substance: AMOXICILLIN
  21. CELEBREX [Concomitant]
     Active Substance: CELECOXIB
  22. TETRACYCLINE [Concomitant]
     Active Substance: TETRACYCLINE
  23. EPIVIR [Concomitant]
     Active Substance: LAMIVUDINE
  24. RETROVIR [Concomitant]
     Active Substance: ZIDOVUDINE
     Dosage: UNK
     Route: 065
     Dates: start: 2011
  25. ZERIT [Concomitant]
     Active Substance: STAVUDINE
  26. CALCIUM [Concomitant]
     Active Substance: CALCIUM
     Dosage: UNK
     Dates: start: 2004
  27. AMPICILLIN [Concomitant]
     Active Substance: AMPICILLIN
  28. ASPIRINA [Concomitant]
     Active Substance: ASPIRIN
  29. PRAVASTINE [Concomitant]
     Active Substance: PRAVASTATIN SODIUM
  30. ZANTAC [Concomitant]
     Active Substance: RANITIDINE HYDROCHLORIDE

REACTIONS (7)
  - End stage renal disease [Not Recovered/Not Resolved]
  - Chronic kidney disease [Unknown]
  - Bone density decreased [Unknown]
  - Renal failure [Unknown]
  - Emotional distress [Unknown]
  - Tooth loss [Not Recovered/Not Resolved]
  - Pain [Unknown]

NARRATIVE: CASE EVENT DATE: 2015
